FAERS Safety Report 25754045 (Version 1)
Quarter: 2025Q3

REPORT INFORMATION
  Report Type: Spontaneous
  Country: CN (occurrence: CN)
  Receive Date: 20250903
  Receipt Date: 20250903
  Transmission Date: 20251020
  Serious: Yes (Other)
  Sender: BEIGENE
  Company Number: CN-ROCHE-10000338278

PATIENT
  Age: 64 Year
  Weight: 80 kg

DRUGS (8)
  1. BRUKINSA [Suspect]
     Active Substance: ZANUBRUTINIB
     Indication: Diffuse large B-cell lymphoma
  2. BRUKINSA [Suspect]
     Active Substance: ZANUBRUTINIB
  3. MABTHERA [Suspect]
     Active Substance: RITUXIMAB
     Indication: Diffuse large B-cell lymphoma
  4. POLATUZUMAB VEDOTIN [Suspect]
     Active Substance: POLATUZUMAB VEDOTIN
     Indication: Diffuse large B-cell lymphoma
  5. SULFAMETHOXAZOLE [Concomitant]
     Active Substance: SULFAMETHOXAZOLE
  6. LEUCOGEN [Concomitant]
     Active Substance: LEUCOGEN
  7. ENTECAVIR [Concomitant]
     Active Substance: ENTECAVIR
  8. CEFACLOR [Concomitant]
     Active Substance: CEFACLOR

REACTIONS (5)
  - Pneumonia [Unknown]
  - Gastrointestinal fungal infection [Unknown]
  - Fungal infection [Unknown]
  - Septic shock [Unknown]
  - Off label use [Unknown]
